FAERS Safety Report 8716466 (Version 2)
Quarter: 2013Q1

REPORT INFORMATION
  Report Type: Spontaneous
  Country: US (occurrence: US)
  Receive Date: 20120810
  Receipt Date: 20130125
  Transmission Date: 20140127
  Serious: No
  Sender: FDA-Public Use
  Company Number: US-009507513-1208USA001585

PATIENT
  Age: 32 Year
  Sex: Female

DRUGS (6)
  1. PEGINTRON [Suspect]
     Indication: LEUKAEMIA
     Dosage: 50 MICROGRAM, QW
     Dates: start: 20120726
  2. AMBIEN [Concomitant]
  3. XANAX [Concomitant]
  4. IBUPROFEN [Concomitant]
  5. DOXAPRAM [Concomitant]
  6. ESTRADIOL [Concomitant]

REACTIONS (2)
  - Injection site erythema [Not Recovered/Not Resolved]
  - Off label use [Unknown]
